FAERS Safety Report 7586592-2 (Version None)
Quarter: 2011Q3

REPORT INFORMATION
  Report Type: 
  Country: None (occurrence: None)
  Receive Date: 20110701
  Receipt Date: 20110623
  Transmission Date: 20111222
  Serious: Yes (Other)
  Sender: FDA-Public Use
  Company Number: US-US-EMD SERONO, INC.-7067002

PATIENT
  Sex: Female

DRUGS (1)
  1. REBIF [Suspect]
     Indication: MULTIPLE SCLEROSIS
     Route: 058
     Dates: start: 20100614

REACTIONS (4)
  - CATARACT [None]
  - COLONIC POLYP [None]
  - MULTIPLE SCLEROSIS RELAPSE [None]
  - IRRITABLE BOWEL SYNDROME [None]
